FAERS Safety Report 11101037 (Version 1)
Quarter: 2015Q2

REPORT INFORMATION
  Report Type: Spontaneous
  Country: FR (occurrence: FR)
  Receive Date: 20150508
  Receipt Date: 20150508
  Transmission Date: 20150821
  Serious: Yes (Life-Threatening)
  Sender: FDA-Public Use
  Company Number: FR-BAXTER-2015BAX023065

PATIENT
  Age: 68 Year
  Sex: Female

DRUGS (6)
  1. CISATRACURIUM [Suspect]
     Active Substance: CISATRACURIUM
     Indication: MAINTENANCE OF ANAESTHESIA
     Route: 042
     Dates: start: 20150420, end: 20150420
  2. KETAMINE PANPHARMA [Suspect]
     Active Substance: KETAMINE
     Indication: INDUCTION OF ANAESTHESIA
     Route: 042
     Dates: start: 20150420, end: 20150420
  3. SEVOFLURANE BAXTER 1 ML/ML, LIQUIDE POUR INHALATION PAR VAPEUR [Suspect]
     Active Substance: SEVOFLURANE
     Indication: MAINTENANCE OF ANAESTHESIA
     Route: 065
     Dates: start: 20150420, end: 20150420
  4. AMOXICILLIN CLAVULANIC ACID [Suspect]
     Active Substance: AMOXICILLIN\CLAVULANIC ACID
     Indication: PROPHYLAXIS
     Route: 042
     Dates: start: 20150420, end: 20150420
  5. PROPOFOL. [Suspect]
     Active Substance: PROPOFOL
     Indication: INDUCTION OF ANAESTHESIA
     Route: 042
     Dates: start: 20150420, end: 20150420
  6. SUFENTANIL [Suspect]
     Active Substance: SUFENTANIL
     Indication: INDUCTION OF ANAESTHESIA
     Route: 042
     Dates: start: 20150420, end: 20150420

REACTIONS (5)
  - Oxygen saturation decreased [Recovering/Resolving]
  - Faecal incontinence [Recovered/Resolved]
  - Anaphylactic shock [Recovering/Resolving]
  - Circulatory collapse [Recovering/Resolving]
  - Generalised erythema [Recovering/Resolving]

NARRATIVE: CASE EVENT DATE: 20150420
